FAERS Safety Report 16264439 (Version 1)
Quarter: 2019Q2

REPORT INFORMATION
  Report Type: Spontaneous
  Country: US (occurrence: US)
  Receive Date: 20190501
  Receipt Date: 20190501
  Transmission Date: 20190711
  Serious: Yes (Other)
  Sender: FDA-Public Use
  Company Number: None

PATIENT
  Age: 21 Year
  Sex: Male
  Weight: 76.5 kg

DRUGS (7)
  1. XOLAIR [Suspect]
     Active Substance: OMALIZUMAB
     Indication: URTICARIA CHRONIC
     Dosage: ?          OTHER ROUTE:INJECTION?
     Dates: start: 20190420, end: 20190420
  2. ZANTAC [Concomitant]
     Active Substance: RANITIDINE HYDROCHLORIDE
  3. ZYRTEC [Concomitant]
     Active Substance: CETIRIZINE HYDROCHLORIDE
  4. ZANTAC [Concomitant]
     Active Substance: RANITIDINE HYDROCHLORIDE
  5. PREDNISONE. [Concomitant]
     Active Substance: PREDNISONE
  6. ALLEGRA 180MG [Concomitant]
  7. BENADRYL 50MG [Concomitant]

REACTIONS (12)
  - Headache [None]
  - Urticaria [None]
  - Pyrexia [None]
  - Oropharyngeal pain [None]
  - Eye swelling [None]
  - Arthralgia [None]
  - Myalgia [None]
  - Therapy non-responder [None]
  - Somnolence [None]
  - Peripheral swelling [None]
  - Ear pain [None]
  - Swollen tongue [None]

NARRATIVE: CASE EVENT DATE: 20190420
